FAERS Safety Report 14088426 (Version 1)
Quarter: 2017Q4

REPORT INFORMATION
  Report Type: Spontaneous
  Country: US (occurrence: US)
  Receive Date: 20171013
  Receipt Date: 20171013
  Transmission Date: 20180321
  Serious: Yes (Other)
  Sender: FDA-Public Use
  Company Number: US-FRESENIUS KABI-FK201708523

PATIENT
  Age: 34 Year
  Sex: Female

DRUGS (8)
  1. DEXAMETHASONE INJECTION (MANUFACTURER UNKNOWN) [Suspect]
     Active Substance: DEXAMETHASONE
     Indication: B-CELL TYPE ACUTE LEUKAEMIA
     Route: 065
  2. FLUDARABINE [Suspect]
     Active Substance: FLUDARABINE PHOSPHATE
     Indication: B-CELL TYPE ACUTE LEUKAEMIA
     Route: 065
  3. METHOTREXATE (MANUFACTURER UNKNOWN) [Suspect]
     Active Substance: METHOTREXATE
     Indication: B-CELL TYPE ACUTE LEUKAEMIA
     Route: 037
  4. CYCLOPHOSPHAMIDE. [Suspect]
     Active Substance: CYCLOPHOSPHAMIDE
     Indication: B-CELL TYPE ACUTE LEUKAEMIA
     Route: 065
  5. DOXORUBICIN (MANUFACTURER UNKNOWN) [Suspect]
     Active Substance: DOXORUBICIN
     Indication: B-CELL TYPE ACUTE LEUKAEMIA
     Route: 065
  6. BUSULFAN. [Suspect]
     Active Substance: BUSULFAN
     Indication: B-CELL TYPE ACUTE LEUKAEMIA
     Route: 065
  7. VINCRISTINE [Suspect]
     Active Substance: VINCRISTINE
     Indication: B-CELL TYPE ACUTE LEUKAEMIA
     Route: 065
  8. DEPO-MEDROL [Suspect]
     Active Substance: METHYLPREDNISOLONE ACETATE
     Indication: OSTEOARTHRITIS
     Route: 065

REACTIONS (1)
  - Osteonecrosis [Recovering/Resolving]
